FAERS Safety Report 25322454 (Version 1)
Quarter: 2025Q2

REPORT INFORMATION
  Report Type: Spontaneous
  Country: CN (occurrence: CN)
  Receive Date: 20250516
  Receipt Date: 20250516
  Transmission Date: 20250716
  Serious: Yes (Hospitalization)
  Sender: COHERUS
  Company Number: CN-SHANGHAI JUNSHI BIOSCIENCES CO., LTD.-CN2025014099

PATIENT

DRUGS (3)
  1. TORIPALIMAB [Suspect]
     Active Substance: TORIPALIMAB
     Indication: Squamous cell carcinoma of lung
     Dosage: 160 MG, Q3W, ADMINISTER FOR 5 CYCLES
     Route: 041
     Dates: start: 20250124, end: 20250424
  2. CAPECITABINE [Suspect]
     Active Substance: CAPECITABINE
     Indication: Squamous cell carcinoma of lung
     Dosage: 1 G  (BID, FOR 14 DAYS, STOP FOR 1 WEEK)
     Route: 048
     Dates: start: 20250213, end: 20250413
  3. CATEQUENTINIB [Suspect]
     Active Substance: CATEQUENTINIB
     Indication: Squamous cell carcinoma of lung
     Route: 048
     Dates: start: 20250124, end: 20250424

REACTIONS (4)
  - Cortisol decreased [Unknown]
  - Palmar-plantar erythrodysaesthesia syndrome [Unknown]
  - Renal impairment [Unknown]
  - Hypothyroidism [Unknown]

NARRATIVE: CASE EVENT DATE: 20250421
